FAERS Safety Report 9008858 (Version 1)
Quarter: 2013Q1

REPORT INFORMATION
  Report Type: Spontaneous
  Country: US (occurrence: US)
  Receive Date: 20130111
  Receipt Date: 20130111
  Transmission Date: 20140127
  Serious: Yes (Hospitalization)
  Sender: FDA-Public Use
  Company Number: US-009507513-1301USA004185

PATIENT
  Age: 55 Year
  Sex: Male

DRUGS (4)
  1. SINGULAIR [Suspect]
     Indication: PRODUCT USED FOR UNKNOWN INDICATION
  2. BOTOX [Suspect]
     Indication: DYSTONIA
     Dosage: 100 UNITS, SINGLE
     Route: 030
  3. BOTOX [Suspect]
     Dosage: 200 UNITS, SINGLE
     Route: 030
  4. COZAAR [Concomitant]

REACTIONS (5)
  - Tooth abscess [Unknown]
  - Pyrexia [Unknown]
  - Pneumothorax [Unknown]
  - Dyspnoea [Unknown]
  - Drug ineffective [Unknown]
